FAERS Safety Report 20895801 (Version 1)
Quarter: 2022Q2

REPORT INFORMATION
  Report Type: Spontaneous
  Country: US (occurrence: US)
  Receive Date: 20220531
  Receipt Date: 20220531
  Transmission Date: 20220720
  Serious: Yes (Life-Threatening, Hospitalization, Other)
  Sender: FDA-Public Use
  Company Number: US-BoehringerIngelheim-2022-BI-172885

PATIENT
  Age: 55 Year
  Sex: Male

DRUGS (11)
  1. EMPAGLIFLOZIN [Suspect]
     Active Substance: EMPAGLIFLOZIN
     Indication: Type 2 diabetes mellitus
  2. METFORMIN HYDROCHLORIDE\SAXAGLIPTIN [Concomitant]
     Active Substance: METFORMIN HYDROCHLORIDE\SAXAGLIPTIN
     Indication: Product used for unknown indication
     Dosage: 2.5-1000 MG TWICE DAILY
  3. DEXAMETHASONE [Concomitant]
     Active Substance: DEXAMETHASONE
     Indication: Product used for unknown indication
  4. DEXAMETHASONE [Concomitant]
     Active Substance: DEXAMETHASONE
  5. DEXAMETHASONE [Concomitant]
     Active Substance: DEXAMETHASONE
     Dosage: 1 HOUR FROM INDUCTION OF ANESTHESIA
  6. MANNITOL [Concomitant]
     Active Substance: MANNITOL
     Indication: Product used for unknown indication
     Route: 042
  7. INSULIN NOS [Concomitant]
     Active Substance: INSULIN NOS
     Indication: Product used for unknown indication
     Dosage: 12 U/H (14 HOUR FROM I FROM INDUCTION OF ANESTHESIA)
  8. INSULIN NOS [Concomitant]
     Active Substance: INSULIN NOS
     Dosage: 12 U/H (1 HOUR POSTOPERATIVE DAY)
  9. INSULIN NOS [Concomitant]
     Active Substance: INSULIN NOS
     Dosage: 3 U/H (5 HOUR POSTOPERATIVE DAY)
  10. D10 1/2 NS [Concomitant]
     Indication: Product used for unknown indication
     Dosage: 175 ML/H (14 HOUR FROM I FROM INDUCTION OF ANESTHESIA)
  11. D10 1/2 NS [Concomitant]
     Dosage: 175 ML/H ( POSTOPERATIVE DAY 1)

REACTIONS (2)
  - Metabolic acidosis [Recovered/Resolved]
  - Euglycaemic diabetic ketoacidosis [Recovered/Resolved]
